FAERS Safety Report 14378176 (Version 1)
Quarter: 2018Q1

REPORT INFORMATION
  Report Type: Spontaneous
  Country: US (occurrence: US)
  Receive Date: 20180111
  Receipt Date: 20180111
  Transmission Date: 20180509
  Serious: No
  Sender: FDA-Public Use
  Company Number: US-LUNDBECK-DKLU2034271

PATIENT
  Age: 71 Year
  Sex: Male

DRUGS (2)
  1. NORTHERA [Suspect]
     Active Substance: DROXIDOPA
     Indication: PRODUCT USED FOR UNKNOWN INDICATION
     Dosage: NOT TITRATING
     Route: 065
     Dates: start: 20170308
  2. NORTHERA [Suspect]
     Active Substance: DROXIDOPA
     Dosage: NOT TITRATING
     Route: 065
     Dates: start: 20170308

REACTIONS (4)
  - Red blood cell count decreased [Unknown]
  - Hyperhidrosis [Unknown]
  - Feeling of body temperature change [Unknown]
  - Blood pressure decreased [Unknown]

NARRATIVE: CASE EVENT DATE: 201707
